FAERS Safety Report 9501526 (Version 1)
Quarter: 2013Q3

REPORT INFORMATION
  Report Type: Spontaneous
  Country: JP (occurrence: JP)
  Receive Date: 20130905
  Receipt Date: 20130905
  Transmission Date: 20140515
  Serious: Yes (Life-Threatening, Hospitalization, Other)
  Sender: FDA-Public Use
  Company Number: JP-BRISTOL-MYERS SQUIBB COMPANY-19216043

PATIENT
  Age: 30 Year
  Sex: Male

DRUGS (9)
  1. REYATAZ [Suspect]
     Indication: HIV INFECTION
     Route: 048
     Dates: start: 20081112
  2. TRUVADA [Suspect]
     Indication: HIV INFECTION
     Route: 048
     Dates: start: 20081112
  3. NORVIR [Suspect]
     Indication: HIV INFECTION
     Route: 048
     Dates: start: 20081112
  4. SAWACILLIN [Concomitant]
     Indication: SYPHILIS
     Dosage: CAP
     Dates: start: 20080922, end: 20081217
  5. ZYRTEC [Concomitant]
     Indication: PRURITUS
     Dates: start: 20081015, end: 200905
  6. MINOMYCIN [Concomitant]
     Indication: SYPHILIS
     Dates: start: 20081218, end: 20090527
  7. URSO [Concomitant]
     Indication: CHRONIC HEPATITIS B
     Dosage: 100 MG X3DAY;3APR10-22MAY10?100 MG XL/DAY;18AUG10-2FEB11?200 MG X2/DAY;1SEP11-ONG
     Dates: start: 20090527
  8. CLARITIN [Concomitant]
     Indication: PRURITUS
     Dates: start: 20100419, end: 20120824
  9. ALLELOCK [Concomitant]
     Indication: PRURITUS
     Dates: start: 20100410, end: 20120824

REACTIONS (9)
  - Suicide attempt [Recovering/Resolving]
  - Thermal burn [Recovering/Resolving]
  - Anaemia [Unknown]
  - Electrolyte imbalance [Unknown]
  - Bacterial infection [Unknown]
  - Hyperbilirubinaemia [Not Recovered/Not Resolved]
  - Hepatic function abnormal [Recovered/Resolved]
  - Blood alkaline phosphatase increased [Not Recovered/Not Resolved]
  - Seborrhoeic dermatitis [Unknown]
